FAERS Safety Report 11663872 (Version 1)
Quarter: 2015Q4

REPORT INFORMATION
  Report Type: Spontaneous
  Country: US (occurrence: None)
  Receive Date: 20151026
  Receipt Date: 20151026
  Transmission Date: 20160304
  Serious: Yes (Hospitalization, Disabling)
  Sender: FDA-Public Use
  Company Number: None

PATIENT
  Age: 78 Year
  Sex: Female
  Weight: 57.61 kg

DRUGS (5)
  1. METOPROLOL [Concomitant]
     Active Substance: METOPROLOL
  2. MULTIVITAMIN [Concomitant]
     Active Substance: VITAMINS
  3. RISPERDAL [Suspect]
     Active Substance: RISPERIDONE
     Indication: AGITATION
  4. LISINOPRIL. [Concomitant]
     Active Substance: LISINOPRIL
  5. VITAMIN B12 [Concomitant]
     Active Substance: CYANOCOBALAMIN

REACTIONS (8)
  - Muscular weakness [None]
  - Unresponsive to stimuli [None]
  - Asthenia [None]
  - Immobile [None]
  - Posture abnormal [None]
  - Blood pressure decreased [None]
  - Movement disorder [None]
  - Weight bearing difficulty [None]

NARRATIVE: CASE EVENT DATE: 20151008
